FAERS Safety Report 10930492 (Version 1)
Quarter: 2015Q1

REPORT INFORMATION
  Report Type: Spontaneous
  Country: US (occurrence: None)
  Receive Date: 20150211
  Receipt Date: 20150211
  Transmission Date: 20150721
  Serious: Yes (Other)
  Sender: FDA-Public Use
  Company Number: 2176976

PATIENT
  Age: 80 Year
  Sex: Male
  Weight: 70.9 kg

DRUGS (5)
  1. CEFAZOLIN [Concomitant]
     Active Substance: CEFAZOLIN
  2. PROPOFOL. [Concomitant]
     Active Substance: PROPOFOL
  3. ONDANSETRON [Concomitant]
     Active Substance: ONDANSETRON
  4. BUPIVACAINE HYDROCHLORIDE\DEXTROSE SOLUTION [Suspect]
     Active Substance: BUPIVACAINE HYDROCHLORIDE\DEXTROSE
     Indication: SPINAL ANAESTHESIA
     Route: 024
     Dates: start: 20140127, end: 20140127
  5. MIDAZOLAM [Concomitant]
     Active Substance: MIDAZOLAM\MIDAZOLAM HYDROCHLORIDE

REACTIONS (1)
  - Drug effect incomplete [None]

NARRATIVE: CASE EVENT DATE: 20140127
